FAERS Safety Report 6365354-8 (Version None)
Quarter: 2009Q3

REPORT INFORMATION
  Report Type: 
  Country: None (occurrence: None)
  Receive Date: 20090919
  Receipt Date: 20090811
  Transmission Date: 20100115
  Serious: No
  Sender: FDA-Public Use
  Company Number: US-ABBOTT-09P-163-0590968-00

PATIENT
  Sex: Female
  Weight: 102.15 kg

DRUGS (8)
  1. HUMIRA [Suspect]
     Indication: RHEUMATOID ARTHRITIS
     Dates: start: 20090728
  2. ZOLOFT [Concomitant]
     Indication: DEPRESSION
  3. PROVIGIL [Concomitant]
     Indication: FATIGUE
  4. PREDNISONE [Concomitant]
     Indication: INFLAMMATION
     Dosage: 15 MILLIGRAM
  5. MOBIC [Concomitant]
     Indication: ARTHROPATHY
  6. SYNTHROID [Concomitant]
     Indication: HYPOTHYROIDISM
  7. PRILOSEC [Concomitant]
     Indication: DRUG USE FOR UNKNOWN INDICATION
  8. VERAMYST [Concomitant]
     Indication: HYPERSENSITIVITY

REACTIONS (1)
  - DRUG DOSE OMISSION [None]
